FAERS Safety Report 14628418 (Version 2)
Quarter: 2018Q2

REPORT INFORMATION
  Report Type: Spontaneous
  Country: JP (occurrence: JP)
  Receive Date: 20180312
  Receipt Date: 20180523
  Transmission Date: 20180711
  Serious: Yes (Hospitalization, Other)
  Sender: FDA-Public Use
  Company Number: JP-AMGEN-JPNSP2018034289

PATIENT
  Age: 72 Year
  Sex: Female
  Weight: 54 kg

DRUGS (40)
  1. PREDONINE [Concomitant]
     Active Substance: PREDNISOLONE
     Indication: DIFFUSE LARGE B-CELL LYMPHOMA
     Dosage: 60 MG, UNK
     Route: 065
     Dates: start: 20171214
  2. PREDONINE [Concomitant]
     Active Substance: PREDNISOLONE
     Dosage: 60 MG, UNK
     Route: 065
     Dates: start: 20180115
  3. ONCOVIN [Concomitant]
     Active Substance: VINCRISTINE SULFATE
     Indication: DIFFUSE LARGE B-CELL LYMPHOMA
     Dosage: 0.4 MG, UNK
     Route: 041
     Dates: start: 20171214, end: 20171217
  4. ENDOXAN                            /00021101/ [Concomitant]
     Active Substance: CYCLOPHOSPHAMIDE
     Dosage: 900 MG, UNK
     Route: 041
     Dates: start: 20180105
  5. ENDOXAN                            /00021101/ [Concomitant]
     Active Substance: CYCLOPHOSPHAMIDE
     Dosage: 900 MG, UNK
     Route: 041
     Dates: start: 20180308, end: 20180329
  6. LANSOPRAZOLE. [Concomitant]
     Active Substance: LANSOPRAZOLE
     Dosage: 15 MG, QD
     Route: 048
  7. PREDONINE [Concomitant]
     Active Substance: PREDNISOLONE
     Dosage: 60 MG, UNK
     Route: 065
  8. MAGNESIUM OXIDE. [Concomitant]
     Active Substance: MAGNESIUM OXIDE
     Dosage: 330 MG, BID
     Route: 048
  9. G-LASTA [Suspect]
     Active Substance: PEGFILGRASTIM
     Indication: COLONY STIMULATING FACTOR PROPHYLAXIS
     Dosage: 3.6 MG, UNK
     Route: 058
     Dates: start: 20180216, end: 20180330
  10. ONCOVIN [Concomitant]
     Active Substance: VINCRISTINE SULFATE
     Dosage: 1.4 MG, UNK
     Route: 041
  11. RITUXAN [Concomitant]
     Active Substance: RITUXIMAB
     Dosage: 500 MG, UNK
     Route: 041
     Dates: start: 20180309, end: 20180419
  12. ALOXI [Concomitant]
     Active Substance: PALONOSETRON HYDROCHLORIDE
     Indication: DIFFUSE LARGE B-CELL LYMPHOMA
     Dosage: 0.75 MG, UNK
     Route: 042
     Dates: start: 20180215, end: 20180329
  13. GLIMEPIRIDE. [Concomitant]
     Active Substance: GLIMEPIRIDE
     Dosage: 1 MG, QD
     Route: 048
  14. TAZOBACTAM SODIUM AND PIPERACILLIN SODIUM [Concomitant]
     Active Substance: PIPERACILLIN SODIUM\TAZOBACTAM SODIUM
     Indication: FEBRILE NEUTROPENIA
     Dosage: 4.5 G, Q6H
     Route: 042
     Dates: start: 20180223, end: 20180227
  15. EVISTA [Concomitant]
     Active Substance: RALOXIFENE HYDROCHLORIDE
     Dosage: 60 MG, QD
     Route: 048
  16. PREDONINE [Concomitant]
     Active Substance: PREDNISOLONE
     Dosage: 60 MG, UNK
     Route: 065
     Dates: start: 20180215
  17. PREDONINE [Concomitant]
     Active Substance: PREDNISOLONE
     Dosage: 60 MG, UNK
     Route: 065
     Dates: start: 20180308, end: 20180403
  18. ONCOVIN [Concomitant]
     Active Substance: VINCRISTINE SULFATE
     Dosage: 1.4 MG, UNK
     Route: 041
     Dates: start: 20180105
  19. RITUXAN [Concomitant]
     Active Substance: RITUXIMAB
     Indication: DIFFUSE LARGE B-CELL LYMPHOMA
     Dosage: 500 MG, UNK
     Route: 041
     Dates: start: 20180129
  20. PINORUBIN                          /00963101/ [Concomitant]
     Active Substance: PIRARUBICIN
     Dosage: 55 MG, UNK
     Route: 041
     Dates: start: 20180308, end: 20180329
  21. FILGRASTIM BS [Concomitant]
     Active Substance: FILGRASTIM
     Dosage: 75 MUG, UNK
     Route: 058
     Dates: start: 20171224, end: 20180208
  22. TRICOR                             /00090101/ [Concomitant]
     Active Substance: ADENOSINE
     Dosage: 80 MG, QD
     Route: 048
  23. NEUTROGIN [Concomitant]
     Active Substance: LENOGRASTIM
     Indication: FEBRILE NEUTROPENIA
     Dosage: 100 MUG, UNK
     Route: 058
     Dates: start: 20180223, end: 20180225
  24. TAZOBACTAM SODIUM AND PIPERACILLIN SODIUM [Concomitant]
     Active Substance: PIPERACILLIN SODIUM\TAZOBACTAM SODIUM
     Dosage: 4.5 G, Q6H
     Route: 042
     Dates: start: 20180316, end: 20180322
  25. LEVOFLOXACIN HEMIHYDRATE [Concomitant]
     Active Substance: LEVOFLOXACIN
     Indication: FEBRILE NEUTROPENIA
     Dosage: 500 MG, UNK
     Route: 048
     Dates: start: 20180226, end: 20180301
  26. ONCOVIN [Concomitant]
     Active Substance: VINCRISTINE SULFATE
     Dosage: 1.4 MG, UNK
     Route: 041
     Dates: start: 20180215
  27. ENDOXAN                            /00021101/ [Concomitant]
     Active Substance: CYCLOPHOSPHAMIDE
     Indication: DIFFUSE LARGE B-CELL LYMPHOMA
     Dosage: 800 MG, UNK
     Route: 041
     Dates: start: 20171219, end: 20171219
  28. ENDOXAN                            /00021101/ [Concomitant]
     Active Substance: CYCLOPHOSPHAMIDE
     Dosage: 900 MG, UNK
     Route: 041
  29. ENDOXAN                            /00021101/ [Concomitant]
     Active Substance: CYCLOPHOSPHAMIDE
     Dosage: 900 MG, UNK
     Route: 041
     Dates: start: 20180215
  30. ADRIACIN [Concomitant]
     Active Substance: DOXORUBICIN HYDROCHLORIDE
     Indication: DIFFUSE LARGE B-CELL LYMPHOMA
     Dosage: 10 MG, UNK
     Route: 041
     Dates: start: 20171214, end: 20171217
  31. RITUXAN [Concomitant]
     Active Substance: RITUXIMAB
     Dosage: 500 MG, UNK
     Route: 041
     Dates: start: 20180216
  32. REBAMIPIDE [Concomitant]
     Active Substance: REBAMIPIDE
     Dosage: 100 MG, TID
     Route: 048
  33. NEUTROGIN [Concomitant]
     Active Substance: LENOGRASTIM
     Dosage: 100 MUG, UNK
     Route: 058
     Dates: start: 20180315, end: 20180319
  34. LEVOFLOXACIN HEMIHYDRATE [Concomitant]
     Active Substance: LEVOFLOXACIN
     Dosage: 500 MG, UNK
     Route: 048
     Dates: start: 20180322, end: 20180326
  35. PINORUBIN                          /00963101/ [Concomitant]
     Active Substance: PIRARUBICIN
     Dosage: 55 MG, UNK
     Route: 041
  36. EQUA [Concomitant]
     Active Substance: VILDAGLIPTIN
     Dosage: 50 MG, BID
     Route: 048
  37. ETOPOSIDE. [Concomitant]
     Active Substance: ETOPOSIDE
     Indication: DIFFUSE LARGE B-CELL LYMPHOMA
     Dosage: 50 MG, UNK
     Route: 041
     Dates: start: 20171214, end: 20171217
  38. ONCOVIN [Concomitant]
     Active Substance: VINCRISTINE SULFATE
     Dosage: 1.4 MG, UNK
     Route: 041
     Dates: start: 20180308, end: 20180329
  39. PINORUBIN                          /00963101/ [Concomitant]
     Active Substance: PIRARUBICIN
     Indication: DIFFUSE LARGE B-CELL LYMPHOMA
     Dosage: 55 MG, UNK
     Route: 041
     Dates: start: 20180105
  40. PINORUBIN                          /00963101/ [Concomitant]
     Active Substance: PIRARUBICIN
     Dosage: 55 MG, UNK
     Route: 041
     Dates: start: 20180215

REACTIONS (7)
  - Drug ineffective [Recovered/Resolved]
  - Drug ineffective [Recovered/Resolved]
  - Febrile neutropenia [Recovered/Resolved]
  - Colony stimulating factor therapy [Unknown]
  - Chemotherapy [Unknown]
  - Febrile neutropenia [Recovered/Resolved]
  - Off label use [Unknown]

NARRATIVE: CASE EVENT DATE: 20180222
